FAERS Safety Report 16173256 (Version 1)
Quarter: 2019Q2

REPORT INFORMATION
  Report Type: Spontaneous
  Country: US (occurrence: US)
  Receive Date: 20190408
  Receipt Date: 20190408
  Transmission Date: 20190711
  Serious: Yes (Other)
  Sender: FDA-Public Use
  Company Number: None

PATIENT
  Age: 71 Year
  Sex: Male
  Weight: 70.2 kg

DRUGS (20)
  1. CELEBREX [Concomitant]
     Active Substance: CELECOXIB
  2. BICALUTAMIDE. [Concomitant]
     Active Substance: BICALUTAMIDE
  3. ACETAMINOPHEN-CODEINE #3 [Concomitant]
     Active Substance: ACETAMINOPHEN\CODEINE PHOSPHATE
  4. SULFASALAZINE. [Concomitant]
     Active Substance: SULFASALAZINE
  5. DOCUSATE CALCIUM. [Concomitant]
     Active Substance: DOCUSATE CALCIUM
  6. ENTRESTO [Concomitant]
     Active Substance: SACUBITRIL\VALSARTAN
  7. PREDNISONE. [Concomitant]
     Active Substance: PREDNISONE
  8. ATORVASTATIN [Concomitant]
     Active Substance: ATORVASTATIN
  9. NITROSTAT [Concomitant]
     Active Substance: NITROGLYCERIN
  10. LACTULOSE. [Concomitant]
     Active Substance: LACTULOSE
  11. XGEVA [Concomitant]
     Active Substance: DENOSUMAB
  12. LUPRON [Concomitant]
     Active Substance: LEUPROLIDE ACETATE
  13. LANSOPRAZOLE. [Concomitant]
     Active Substance: LANSOPRAZOLE
  14. ABIRATERONE. [Suspect]
     Active Substance: ABIRATERONE ACETATE
     Indication: NEOPLASM PROSTATE
     Route: 048
     Dates: start: 20190326, end: 20190408
  15. METOPROLOL. [Concomitant]
     Active Substance: METOPROLOL
  16. FUROSEMIDE. [Concomitant]
     Active Substance: FUROSEMIDE
  17. SPIRONOLACTONE. [Concomitant]
     Active Substance: SPIRONOLACTONE
  18. VITAMIN D3 [Concomitant]
     Active Substance: CHOLECALCIFEROL
  19. OXYCODONE [Concomitant]
     Active Substance: OXYCODONE
  20. ASPIRIN. [Concomitant]
     Active Substance: ASPIRIN

REACTIONS (1)
  - Rash [None]

NARRATIVE: CASE EVENT DATE: 20190408
